FAERS Safety Report 10371061 (Version 1)
Quarter: 2014Q3

REPORT INFORMATION
  Report Type: Spontaneous
  Country: DE (occurrence: DE)
  Receive Date: 20140808
  Receipt Date: 20140808
  Transmission Date: 20150326
  Serious: Yes (Hospitalization)
  Sender: FDA-Public Use
  Company Number: DE-BAYER-2014-118359

PATIENT
  Age: 44 Year
  Sex: Female

DRUGS (1)
  1. ULTRAGRAF [Suspect]
     Active Substance: IOPROMIDE
     Dosage: 100 ML, UNK

REACTIONS (5)
  - Nasal congestion [Unknown]
  - Dysphonia [Unknown]
  - Swelling face [Unknown]
  - Urticaria [Unknown]
  - Flushing [Unknown]
